FAERS Safety Report 4932484-4 (Version None)
Quarter: 2006Q1

REPORT INFORMATION
  Report Type: 
  Country: None (occurrence: None)
  Receive Date: 20060228
  Receipt Date: 20060206
  Transmission Date: 20060701
  Serious: Yes (Other)
  Sender: FDA-Public Use
  Company Number: US200511001342

PATIENT
  Sex: Female

DRUGS (2)
  1. INSULIN, ANIMAL (INSULIN, ANIMAL) VIAL [Suspect]
     Indication: DIABETES MELLITUS
     Dosage: 4/D
     Dates: start: 19300101
  2. HUMULIN 70/30 [Suspect]
     Indication: DIABETES MELLITUS
     Dates: start: 19880101

REACTIONS (6)
  - CATARACT [None]
  - EYE HAEMORRHAGE [None]
  - EYE PAIN [None]
  - EYE PROSTHESIS USER [None]
  - VISUAL ACUITY REDUCED [None]
  - VITRECTOMY [None]
